FAERS Safety Report 6843623-2 (Version None)
Quarter: 2010Q3

REPORT INFORMATION
  Report Type: 
  Country: None (occurrence: None)
  Receive Date: 20100715
  Receipt Date: 20100709
  Transmission Date: 20110219
  Serious: Yes (Hospitalization)
  Sender: FDA-Public Use
  Company Number: TH-SANOFI-AVENTIS-200820725GDDC

PATIENT
  Age: 58 Year
  Sex: Male
  Weight: 63.5 kg

DRUGS (9)
  1. DOCETAXEL [Suspect]
     Route: 042
     Dates: start: 20081016, end: 20081016
  2. CISPLATIN [Suspect]
     Route: 042
     Dates: start: 20081016, end: 20081016
  3. DEXAMETHASONE ACETATE [Concomitant]
     Indication: PREMEDICATION
     Route: 042
     Dates: start: 20081016, end: 20081016
  4. ONDANSETRON [Concomitant]
     Route: 042
     Dates: start: 20081016, end: 20081016
  5. ONDANSETRON [Concomitant]
     Route: 048
     Dates: start: 20081017, end: 20081020
  6. LORAZEPAM [Concomitant]
     Indication: PREMEDICATION
     Route: 048
     Dates: start: 20081016, end: 20081016
  7. TRAMADOL [Concomitant]
     Route: 048
     Dates: start: 20081017, end: 20081021
  8. FBC [Concomitant]
     Indication: NUTRITIONAL SUPPORT
     Route: 048
     Dates: start: 20081017, end: 20081031
  9. CODEINE [Concomitant]
     Route: 048
     Dates: start: 20081017, end: 20081028

REACTIONS (2)
  - ASCITES [None]
  - HEPATIC CIRRHOSIS [None]
